FAERS Safety Report 8273103-1 (Version None)
Quarter: 2012Q2

REPORT INFORMATION
  Report Type: 
  Country: None (occurrence: None)
  Receive Date: 20120411
  Receipt Date: 20120402
  Transmission Date: 20120825
  Serious: Yes (Hospitalization)
  Sender: FDA-Public Use
  Company Number: FR-BAYER-2012-032617

PATIENT
  Age: 83 Year
  Sex: Male

DRUGS (3)
  1. AUGMENTIN '125' [Suspect]
     Indication: LUNG DISORDER
     Dosage: 1 G, TID
     Route: 042
     Dates: start: 20120205
  2. PREVISCAN [Suspect]
     Dosage: UNK
     Route: 048
     Dates: end: 20120210
  3. CIPROFLOXACIN HYDROCHLORIDE [Suspect]
     Dosage: 400 MG, BID
     Route: 042
     Dates: start: 20120208

REACTIONS (3)
  - MUSCLE HAEMORRHAGE [None]
  - ANAEMIA [None]
  - INTERNATIONAL NORMALISED RATIO INCREASED [None]
